FAERS Safety Report 18584798 (Version 1)
Quarter: 2020Q4

REPORT INFORMATION
  Report Type: Spontaneous
  Country: US (occurrence: US)
  Receive Date: 20201207
  Receipt Date: 20201207
  Transmission Date: 20210114
  Serious: No
  Sender: FDA-Public Use
  Company Number: US-SUN PHARMACEUTICAL INDUSTRIES LTD-2020R1-264638

PATIENT
  Sex: Female

DRUGS (1)
  1. CEQUA [Suspect]
     Active Substance: CYCLOSPORINE
     Indication: DRY EYE
     Dosage: UNK
     Route: 047

REACTIONS (5)
  - Eyelid exfoliation [Recovering/Resolving]
  - Conjunctival oedema [Recovering/Resolving]
  - Drug ineffective [Unknown]
  - Ocular hyperaemia [Recovering/Resolving]
  - Swelling of eyelid [Recovering/Resolving]
